FAERS Safety Report 17235792 (Version 1)
Quarter: 2020Q1

REPORT INFORMATION
  Report Type: Spontaneous
  Country: US (occurrence: US)
  Receive Date: 20200106
  Receipt Date: 20200106
  Transmission Date: 20200409
  Serious: No
  Sender: FDA-Public Use
  Company Number: US-TEVA-2020-US-1163726

PATIENT
  Sex: Male

DRUGS (1)
  1. CLONAZEPAM. [Suspect]
     Active Substance: CLONAZEPAM
     Indication: ANXIETY
     Route: 065

REACTIONS (6)
  - Diarrhoea [Unknown]
  - Feeling abnormal [Unknown]
  - Anxiety [Unknown]
  - Hypopnoea [Unknown]
  - Muscle twitching [Unknown]
  - Product substitution issue [Unknown]
